FAERS Safety Report 24691750 (Version 1)
Quarter: 2024Q4

REPORT INFORMATION
  Report Type: Spontaneous
  Country: US (occurrence: None)
  Receive Date: 20241203
  Receipt Date: 20241203
  Transmission Date: 20250114
  Serious: Yes (Life-Threatening)
  Sender: Public
  Company Number: None

PATIENT
  Age: 37 Year
  Sex: Female
  Weight: 48 kg

DRUGS (1)
  1. CEFAZOLIN SODIUM [Suspect]
     Active Substance: CEFAZOLIN SODIUM
     Indication: Infection prophylaxis
     Dosage: 2.00 G GRAM(S) ONCE INTRAVENOUS?
     Route: 042
     Dates: start: 20241119, end: 20241119

REACTIONS (2)
  - Cardiovascular disorder [None]
  - Rash [None]

NARRATIVE: CASE EVENT DATE: 20241120
